FAERS Safety Report 12472557 (Version 2)
Quarter: 2016Q2

REPORT INFORMATION
  Report Type: Spontaneous
  Country: US (occurrence: US)
  Receive Date: 20160616
  Receipt Date: 20160623
  Transmission Date: 20160815
  Serious: Yes (Other)
  Sender: FDA-Public Use
  Company Number: US-009507513-1509USA010589

PATIENT
  Age: 27 Year
  Sex: Female

DRUGS (6)
  1. KEYTRUDA [Suspect]
     Active Substance: PEMBROLIZUMAB
     Indication: MALIGNANT MELANOMA STAGE IV
     Dosage: 1 DOSE ONLY
     Route: 042
     Dates: start: 20150903
  2. MORPHINE SULFATE. [Concomitant]
     Active Substance: MORPHINE SULFATE
     Dosage: UNK
     Dates: start: 201508
  3. DEXAMETHASONE. [Concomitant]
     Active Substance: DEXAMETHASONE
     Dosage: UNK
     Route: 048
     Dates: start: 20150903
  4. FLUCONAZOLE. [Concomitant]
     Active Substance: FLUCONAZOLE
  5. OXYCODONE [Concomitant]
     Active Substance: OXYCODONE
     Route: 042
  6. IPILIMUMAB [Concomitant]
     Active Substance: IPILIMUMAB
     Dosage: ONCE
     Route: 042

REACTIONS (4)
  - Premature delivery [Unknown]
  - Maternal exposure during pregnancy [Recovered/Resolved]
  - Caesarean section [Unknown]
  - Premature labour [Unknown]

NARRATIVE: CASE EVENT DATE: 20150919
